FAERS Safety Report 9075973 (Version 2)
Quarter: 2013Q1

REPORT INFORMATION
  Report Type: Spontaneous
  Country: LU (occurrence: LU)
  Receive Date: 20130130
  Receipt Date: 20130222
  Transmission Date: 20140127
  Serious: Yes (Hospitalization)
  Sender: FDA-Public Use
  Company Number: LU-B.I. PHARMACEUTICALS,INC./RIDGEFIELD-2013-BL-00045BL

PATIENT
  Age: 69 None
  Sex: Female
  Weight: 82 kg

DRUGS (6)
  1. PRADAXA [Suspect]
     Indication: ATRIAL FIBRILLATION
     Dosage: 220 MG
     Dates: start: 20121218, end: 20130110
  2. JANUMET [Concomitant]
     Indication: DIABETES MELLITUS
     Dosage: 50/100 : 2
     Route: 048
  3. LASIX [Concomitant]
     Indication: CARDIAC DISORDER
     Dosage: 40 MG
     Route: 048
  4. CONCOR [Concomitant]
     Indication: ATRIAL FIBRILLATION
     Dosage: 5 MG
     Route: 048
  5. CORDARONE [Concomitant]
     Indication: ATRIAL FIBRILLATION
     Dosage: 200 MG
     Route: 048
  6. RISPERDAL [Concomitant]
     Indication: PSYCHOTIC DISORDER
     Dosage: 3 MG
     Route: 048

REACTIONS (2)
  - Hepatocellular injury [Not Recovered/Not Resolved]
  - Heart rate increased [Not Recovered/Not Resolved]
